FAERS Safety Report 22881543 (Version 2)
Quarter: 2023Q4

REPORT INFORMATION
  Report Type: Report from Study
  Country: US (occurrence: US)
  Receive Date: 20230830
  Receipt Date: 20231121
  Transmission Date: 20240110
  Serious: Yes (Other)
  Sender: FDA-Public Use
  Company Number: US-ABBVIE-5386835

PATIENT
  Sex: Female
  Weight: 88.904 kg

DRUGS (1)
  1. SKYRIZI [Suspect]
     Active Substance: RISANKIZUMAB-RZAA
     Indication: Crohn^s disease
     Dosage: 360 MG/2.4 ML
     Route: 058
     Dates: start: 20230421

REACTIONS (4)
  - Hernia [Recovering/Resolving]
  - Incisional hernia [Unknown]
  - Impaired healing [Recovering/Resolving]
  - Necrosis [Not Recovered/Not Resolved]

NARRATIVE: CASE EVENT DATE: 20230101
